FAERS Safety Report 12169214 (Version 2)
Quarter: 2016Q2

REPORT INFORMATION
  Report Type: Spontaneous
  Country: US (occurrence: US)
  Receive Date: 20160310
  Receipt Date: 20160510
  Transmission Date: 20160815
  Serious: Yes (Hospitalization)
  Sender: FDA-Public Use
  Company Number: US-SA-2016SA044996

PATIENT
  Age: 56 Year
  Sex: Male
  Weight: 194 kg

DRUGS (3)
  1. RASBURICASE [Suspect]
     Active Substance: RASBURICASE
     Indication: TUMOUR LYSIS SYNDROME
     Route: 065
  2. VANCOMYCIN [Concomitant]
     Active Substance: VANCOMYCIN
     Indication: CELLULITIS
  3. TAZOBACTAM/PIPERACILLIN [Suspect]
     Active Substance: PIPERACILLIN SODIUM\TAZOBACTAM SODIUM
     Indication: SEPSIS
     Route: 065

REACTIONS (11)
  - Blood lactate dehydrogenase increased [Recovering/Resolving]
  - Eosinophilia [Recovering/Resolving]
  - Blood creatinine increased [Recovering/Resolving]
  - Product use issue [Unknown]
  - Hypoxia [Recovering/Resolving]
  - Encephalopathy [Recovering/Resolving]
  - Blood bilirubin increased [Recovering/Resolving]
  - Methaemoglobinaemia [Recovering/Resolving]
  - Tubulointerstitial nephritis [Recovering/Resolving]
  - Haemolytic anaemia [Recovering/Resolving]
  - Haptoglobin decreased [Recovering/Resolving]
